FAERS Safety Report 21215220 (Version 1)
Quarter: 2022Q3

REPORT INFORMATION
  Report Type: Spontaneous
  Country: US (occurrence: US)
  Receive Date: 20220816
  Receipt Date: 20220816
  Transmission Date: 20221026
  Serious: No
  Sender: FDA-Public Use
  Company Number: US-GSKCCFUS-Case-01460548_AE-83644

PATIENT
  Sex: Female

DRUGS (1)
  1. ADVAIR DISKUS [Suspect]
     Active Substance: FLUTICASONE PROPIONATE\SALMETEROL XINAFOATE
     Indication: Seasonal allergy
     Dosage: UNK, 250/50, QD, 1 PUFF(S), QD
     Route: 055
     Dates: start: 2011

REACTIONS (3)
  - Product use in unapproved indication [Unknown]
  - Underdose [Unknown]
  - Inappropriate schedule of product administration [Unknown]
